FAERS Safety Report 4353285-4 (Version None)
Quarter: 2004Q2

REPORT INFORMATION
  Report Type: 
  Country: None (occurrence: None)
  Receive Date: 20040504
  Receipt Date: 20040126
  Transmission Date: 20050107
  Serious: Yes (Death, Other)
  Sender: FDA-Public Use
  Company Number: 2004S1000227

PATIENT
  Age: 34 Year
  Sex: Female
  Weight: 102.0593 kg

DRUGS (3)
  1. BUTORPHANOL TARTRATE [Suspect]
     Indication: MIGRAINE
     Dosage: 1MG Q12H PRN, INTRANASAL
     Route: 045
     Dates: start: 20010101
  2. ACETAMINOPHEN [Concomitant]
  3. LEVOTHYROXINE [Concomitant]

REACTIONS (7)
  - BURNING SENSATION [None]
  - DIZZINESS [None]
  - DRUG INEFFECTIVE [None]
  - DYSGEUSIA [None]
  - NASAL DISORDER [None]
  - PHARMACEUTICAL PRODUCT COMPLAINT [None]
  - SOMNOLENCE [None]
